FAERS Safety Report 7801923-3 (Version None)
Quarter: 2011Q4

REPORT INFORMATION
  Report Type: 
  Country: None (occurrence: None)
  Receive Date: 20111007
  Receipt Date: 20111007
  Transmission Date: 20120403
  Serious: Yes (Hospitalization)
  Sender: FDA-Public Use
  Company Number: None

PATIENT
  Age: 41 Year
  Sex: Female
  Weight: 145 kg

DRUGS (8)
  1. PRILOSEC [Concomitant]
     Route: 048
  2. LUPRON [Concomitant]
  3. DULOXETIME HYDROCHLORIDE [Concomitant]
     Route: 048
  4. NOVOLOG 75/25 [Concomitant]
  5. LIPITOR [Concomitant]
     Route: 048
  6. PREMARIN [Concomitant]
  7. VICTOZA [Suspect]
     Indication: TYPE 1 DIABETES MELLITUS
     Dosage: 0.6 MG
     Route: 058
     Dates: start: 20110822, end: 20110920
  8. CLARITIN-D 24 HOUR [Concomitant]
     Route: 048

REACTIONS (1)
  - PANCREATITIS [None]
